FAERS Safety Report 5035582-2 (Version None)
Quarter: 2006Q2

REPORT INFORMATION
  Report Type: 
  Country: None (occurrence: None)
  Receive Date: 20060627
  Receipt Date: 20060612
  Transmission Date: 20061013
  Serious: Yes (Hospitalization, Other)
  Sender: FDA-Public Use
  Company Number: FRWYE717912JUN06

PATIENT
  Age: 48 Year
  Sex: Male
  Weight: 78 kg

DRUGS (4)
  1. ENBREL [Suspect]
     Indication: SARCOIDOSIS
     Route: 058
     Dates: start: 20041230, end: 20051101
  2. CORTICOSTEROID NOS [Concomitant]
     Indication: SARCOIDOSIS
     Dosage: 13 MG TOTAL DAILY
     Route: 065
     Dates: start: 20000801
  3. REMICADE [Concomitant]
     Indication: CARDIAC DISORDER
     Dosage: UNKNOWN
     Route: 065
     Dates: start: 20051117
  4. METHOTREXATE [Concomitant]
     Indication: SARCOIDOSIS
     Dosage: 25 MG TOTAL WEEKLY
     Route: 065
     Dates: start: 20030901, end: 20051216

REACTIONS (6)
  - ARTHRALGIA [None]
  - ARTHRITIS BACTERIAL [None]
  - BLOOD CULTURE POSITIVE [None]
  - COUGH [None]
  - CRYPTOCOCCOSIS [None]
  - DRUG INEFFECTIVE [None]
